FAERS Safety Report 7324679-X (Version None)
Quarter: 2011Q1

REPORT INFORMATION
  Report Type: 
  Country: None (occurrence: None)
  Receive Date: 20110301
  Receipt Date: 20110217
  Transmission Date: 20110831
  Serious: Yes (Other)
  Sender: FDA-Public Use
  Company Number: FR-PFIZER INC-FR-WYE-G05652710

PATIENT
  Age: 49 Year
  Sex: Male

DRUGS (6)
  1. TEMSIROLIMUS [Suspect]
     Indication: METASTATIC RENAL CELL CARCINOMA
     Dosage: 25 MG, 1X/WK
     Route: 042
     Dates: start: 20080822
  2. AVASTIN [Suspect]
     Indication: METASTATIC RENAL CELL CARCINOMA
     Dosage: 10 MG/KG, 1X/2WK
     Route: 042
     Dates: start: 20080822, end: 20100212
  3. ESIDRIX [Concomitant]
     Dosage: UNK
     Route: 048
     Dates: start: 20100104
  4. COVERSYL [Concomitant]
     Dosage: UNK
     Route: 048
     Dates: start: 20100104
  5. AMLODIPINE BESILATE [Concomitant]
     Dosage: UNK
     Route: 048
     Dates: start: 20100104
  6. SITAGLIPTIN [Concomitant]
     Dosage: UNK
     Route: 048
     Dates: start: 20091201

REACTIONS (1)
  - OSTEONECROSIS OF JAW [None]
